FAERS Safety Report 4933609-7 (Version None)
Quarter: 2006Q1

REPORT INFORMATION
  Report Type: 
  Country: None (occurrence: None)
  Receive Date: 20060111
  Receipt Date: 20050518
  Transmission Date: 20060701
  Serious: No
  Sender: FDA-Public Use
  Company Number: A001-002-006556

PATIENT
  Sex: Female
  Weight: 55 kg

DRUGS (7)
  1. ARICEPT [Suspect]
     Indication: DEMENTIA ALZHEIMER'S TYPE
     Dosage: 5 MG, 1 IN1 D; ORAL
     Route: 048
     Dates: start: 20040101
  2. ARICEPT [Suspect]
     Indication: VASCULAR DEMENTIA
     Dosage: 5 MG, 1 IN1 D; ORAL
     Route: 048
     Dates: start: 20040101
  3. NEURONTIN [Suspect]
     Indication: CONVULSION
     Dosage: 20 ML, 4 IN 1 D, ORAL
     Route: 048
     Dates: start: 20041112
  4. DILANTIN [Concomitant]
  5. KEPPRA [Concomitant]
  6. ZOLOFT [Concomitant]
  7. XANAX [Concomitant]

REACTIONS (3)
  - AGITATION [None]
  - DEPRESSION [None]
  - GRAND MAL CONVULSION [None]
